FAERS Safety Report 16438699 (Version 1)
Quarter: 2020Q3

REPORT INFORMATION
  Report Type: Spontaneous
  Country: RU (occurrence: RU)
  Receive Date: 20190617
  Receipt Date: 20190617
  Transmission Date: 20201104
  Serious: No
  Sender: FDA-Public Use
  Company Number: RU-ROCHE-2337420

PATIENT
  Age: 23 Year
  Sex: Female

DRUGS (3)
  1. MITOXANTRONE [Suspect]
     Active Substance: MITOXANTRONE HYDROCHLORIDE
     Indication: RELAPSING-REMITTING MULTIPLE SCLEROSIS
     Dosage: TOTAL DOSE OF 36.9 MG
     Route: 065
     Dates: start: 2008, end: 2009
  2. OCRELIZUMAB. [Suspect]
     Active Substance: OCRELIZUMAB
     Indication: RELAPSING-REMITTING MULTIPLE SCLEROSIS
     Route: 042
     Dates: start: 20180920
  3. LAQUINIMOD. [Suspect]
     Active Substance: LAQUINIMOD
     Indication: RELAPSING-REMITTING MULTIPLE SCLEROSIS
     Route: 065
     Dates: start: 2005, end: 2008

REACTIONS (4)
  - Oral herpes [Recovered/Resolved]
  - Visual acuity reduced [Unknown]
  - Respiratory tract infection viral [Unknown]
  - Infusion related reaction [Recovered/Resolved]

NARRATIVE: CASE EVENT DATE: 201809
